FAERS Safety Report 7501082-0 (Version None)
Quarter: 2011Q2

REPORT INFORMATION
  Report Type: 
  Country: None (occurrence: None)
  Receive Date: 20110524
  Receipt Date: 20110516
  Transmission Date: 20111010
  Serious: Yes (Hospitalization, Congenital Anomaly, Other)
  Sender: FDA-Public Use
  Company Number: US-PFIZER INC-2011105725

PATIENT
  Sex: Male
  Weight: 1.814 kg

DRUGS (10)
  1. ACTIGALL [Concomitant]
     Dosage: UNK
     Route: 064
  2. AMBIEN [Concomitant]
     Dosage: UNK
     Route: 064
  3. BETAMETHASONE [Concomitant]
     Dosage: UNK
     Route: 064
  4. TERBUTALINE [Concomitant]
     Dosage: UNK
     Route: 064
  5. PROCARDIA [Concomitant]
     Dosage: UNK
     Route: 064
  6. FERROUS SULFATE [Concomitant]
     Dosage: UNK
     Route: 064
  7. EFFEXOR [Suspect]
     Dosage: UNK
     Route: 064
  8. BENADRYL [Concomitant]
     Dosage: UNK
     Route: 064
  9. AMPICILLIN [Concomitant]
     Dosage: UNK
     Route: 064
  10. NIFEDIPINE [Concomitant]
     Dosage: UNK
     Route: 064

REACTIONS (22)
  - PREMATURE BABY [None]
  - HYDRONEPHROSIS [None]
  - PATENT DUCTUS ARTERIOSUS [None]
  - MACROCEPHALY [None]
  - DYSPHAGIA [None]
  - HYPOTENSION [None]
  - COARCTATION OF THE AORTA [None]
  - VENTRICULAR SEPTAL DEFECT [None]
  - HYPOPLASTIC LEFT HEART SYNDROME [None]
  - DRUG EXPOSURE DURING PREGNANCY [None]
  - SEPSIS NEONATAL [None]
  - HEART DISEASE CONGENITAL [None]
  - ATRIAL SEPTAL DEFECT [None]
  - HYPOXIA [None]
  - ECZEMA [None]
  - DOUBLE OUTLET RIGHT VENTRICLE [None]
  - AORTIC STENOSIS [None]
  - HYPERBILIRUBINAEMIA [None]
  - APNOEA [None]
  - DEVELOPMENTAL DELAY [None]
  - TRANSPOSITION OF THE GREAT VESSELS [None]
  - AORTIC VALVE ATRESIA [None]
